FAERS Safety Report 23707537 (Version 1)
Quarter: 2024Q2

REPORT INFORMATION
  Report Type: Spontaneous
  Country: TW (occurrence: TW)
  Receive Date: 20240404
  Receipt Date: 20240404
  Transmission Date: 20240716
  Serious: Yes (Other)
  Sender: FDA-Public Use
  Company Number: TW-ROCHE-3364628

PATIENT
  Age: 7 Year
  Sex: Male
  Weight: 19 kg

DRUGS (14)
  1. MIRCERA [Suspect]
     Active Substance: METHOXY POLYETHYLENE GLYCOL-EPOETIN BETA
     Indication: Chronic kidney disease
     Dosage: 2.63 MCG/ KG/DOSE EVERY MONTH FOR DURATION 6 MONTHS
     Route: 058
     Dates: start: 20220511, end: 20221124
  2. MIRCERA [Suspect]
     Active Substance: METHOXY POLYETHYLENE GLYCOL-EPOETIN BETA
     Indication: Nephrogenic anaemia
  3. EPOETIN BETA [Suspect]
     Active Substance: ERYTHROPOIETIN
     Indication: Chronic kidney disease
     Dosage: 526 IU/KG/WEEK FOR 123 DAYS DURATION
     Route: 058
     Dates: start: 20230118, end: 20230520
  4. EPOETIN BETA [Suspect]
     Active Substance: ERYTHROPOIETIN
     Indication: Nephrogenic anaemia
  5. EPOETIN BETA [Suspect]
     Active Substance: ERYTHROPOIETIN
  6. DARBEPOETIN ALFA [Concomitant]
     Active Substance: DARBEPOETIN ALFA
     Dosage: 1 DOSE
     Route: 058
     Dates: start: 20230520, end: 20230530
  7. PREDNISOLONE [Concomitant]
     Active Substance: PREDNISOLONE
     Dosage: 0.5 MG/KG/DAY 2 TIMES
     Dates: start: 20230630, end: 20230710
  8. PREDNISOLONE [Concomitant]
     Active Substance: PREDNISOLONE
     Dates: start: 20230710, end: 20230802
  9. PREDNISOLONE [Concomitant]
     Active Substance: PREDNISOLONE
     Dosage: 5M ALTERNATIVE
     Dates: start: 20231115, end: 20231206
  10. PREDNISOLONE [Concomitant]
     Active Substance: PREDNISOLONE
     Dates: start: 20231206
  11. METHYLPREDNISOLONE [Concomitant]
     Active Substance: METHYLPREDNISOLONE
     Dosage: 0.84MG/KG/DAY
     Dates: start: 20230802, end: 20230817
  12. METHYLPREDNISOLONE [Concomitant]
     Active Substance: METHYLPREDNISOLONE
     Dosage: 16MG, 8MG ALTERNATIVE
     Dates: start: 20230817, end: 20230913
  13. METHYLPREDNISOLONE [Concomitant]
     Active Substance: METHYLPREDNISOLONE
     Dosage: 0.42MG/KG/DAY
     Dates: start: 20230913, end: 20231115
  14. AZATHIOPRINE [Concomitant]
     Active Substance: AZATHIOPRINE
     Dosage: 1.97 MG/KG/DOSE
     Dates: start: 20230719

REACTIONS (12)
  - Renal impairment [Unknown]
  - Aplasia pure red cell [Not Recovered/Not Resolved]
  - Reticulocyte count decreased [Not Recovered/Not Resolved]
  - Blood iron increased [Unknown]
  - Iron binding capacity unsaturated decreased [Unknown]
  - Blood folate increased [Unknown]
  - Vitamin B12 increased [Unknown]
  - Anti-erythropoietin antibody positive [Unknown]
  - Blood erythropoietin abnormal [Unknown]
  - Blood creatinine increased [Unknown]
  - Haemoglobin decreased [Not Recovered/Not Resolved]
  - Off label use [Unknown]

NARRATIVE: CASE EVENT DATE: 20220511
